FAERS Safety Report 8965682 (Version 1)
Quarter: 2012Q4

REPORT INFORMATION
  Report Type: Spontaneous
  Country: US (occurrence: None)
  Receive Date: 20121206
  Receipt Date: 20121206
  Transmission Date: 20130627
  Serious: Yes (Hospitalization)
  Sender: FDA-Public Use
  Company Number: 2012AP004064

PATIENT
  Age: 8 Year
  Sex: Male

DRUGS (4)
  1. ONDANSETRON [Suspect]
  2. MERCAPTOPURINE [Concomitant]
  3. METHOTREXATE [Concomitant]
  4. COTRIMOXAZOLE [Concomitant]

REACTIONS (5)
  - Hypotension [None]
  - Vomiting [None]
  - Anaemia macrocytic [None]
  - Intentional overdose [None]
  - Blood pressure decreased [None]
